FAERS Safety Report 7739552-2 (Version None)
Quarter: 2011Q3

REPORT INFORMATION
  Report Type: 
  Country: None (occurrence: None)
  Receive Date: 20110909
  Receipt Date: 20110830
  Transmission Date: 20111222
  Serious: Yes (Life-Threatening, Hospitalization)
  Sender: FDA-Public Use
  Company Number: FR-KINGPHARMUSA00001-K201101008

PATIENT
  Age: 60 Year
  Sex: Male

DRUGS (5)
  1. ALTACE [Suspect]
     Dosage: 1.25 MG, QD
     Route: 048
     Dates: start: 20110802, end: 20110807
  2. ALTACE [Suspect]
     Dosage: 1.25 MG, BID
     Route: 048
     Dates: start: 20110701, end: 20110801
  3. PREVISCAN [Suspect]
     Dosage: UNK
     Dates: start: 20110701
  4. CORDARONE [Suspect]
     Dosage: 200 MG, UNK
     Route: 048
     Dates: start: 20110701
  5. CARVEDILOL [Suspect]
     Dosage: UNK
     Route: 048
     Dates: start: 20110701

REACTIONS (4)
  - SEPSIS [None]
  - DYSPNOEA [None]
  - AGRANULOCYTOSIS [None]
  - CYANOSIS [None]
